FAERS Safety Report 6819154-2 (Version None)
Quarter: 2010Q2

REPORT INFORMATION
  Report Type: 
  Country: None (occurrence: None)
  Receive Date: 20100630
  Receipt Date: 20100625
  Transmission Date: 20101027
  Serious: Yes (Other)
  Sender: FDA-Public Use
  Company Number: 10-230

PATIENT
  Age: 51 Year
  Sex: Female

DRUGS (2)
  1. ALEVE [Suspect]
     Indication: RHEUMATOID ARTHRITIS
     Dosage: 880 MG, DAILY, ORAL
     Route: 048
     Dates: start: 20100301, end: 20100101
  2. NUTRIENT 950 [Concomitant]

REACTIONS (3)
  - ARRHYTHMIA [None]
  - DRUG INEFFECTIVE [None]
  - HEART RATE IRREGULAR [None]
